FAERS Safety Report 18991500 (Version 1)
Quarter: 2021Q1

REPORT INFORMATION
  Report Type: Spontaneous
  Country: US (occurrence: US)
  Receive Date: 20210310
  Receipt Date: 20210310
  Transmission Date: 20210420
  Serious: No
  Sender: FDA-Public Use
  Company Number: US-TEVA-2021-US-1879931

PATIENT
  Age: 64 Year
  Sex: Female

DRUGS (10)
  1. AUSTEDO [Suspect]
     Active Substance: DEUTETRABENAZINE
     Indication: TARDIVE DYSKINESIA
     Dosage: 12 MILLIGRAM DAILY;
     Route: 048
     Dates: start: 20210201
  2. ELIQUIS [Concomitant]
     Active Substance: APIXABAN
     Route: 048
  3. METFORMIN HCL ER TABLET EXTENDED RELEASE 24 HOUR 500 MG [Concomitant]
     Route: 048
  4. OMEPRAZOLE CAPSULE DELAYED RELEASE 40 MG [Concomitant]
     Route: 048
  5. CRESTOR [Concomitant]
     Active Substance: ROSUVASTATIN CALCIUM
     Route: 048
  6. VRAYLAR 1.5 MG [Concomitant]
     Route: 048
  7. JARDIANCE [Concomitant]
     Active Substance: EMPAGLIFLOZIN
     Route: 048
  8. BUSPIRONE HCL 15 MG [Concomitant]
     Route: 048
  9. LAMICTAL [Concomitant]
     Active Substance: LAMOTRIGINE
     Route: 048
  10. AMBIEN [Concomitant]
     Active Substance: ZOLPIDEM TARTRATE
     Route: 048

REACTIONS (2)
  - Aggression [Unknown]
  - Anger [Unknown]

NARRATIVE: CASE EVENT DATE: 20210207
